FAERS Safety Report 4975826-6 (Version None)
Quarter: 2006Q2

REPORT INFORMATION
  Report Type: 
  Country: None (occurrence: None)
  Receive Date: 20060411
  Receipt Date: 20060327
  Transmission Date: 20061013
  Serious: Yes (Other)
  Sender: FDA-Public Use
  Company Number: 200603IM000216

PATIENT
  Age: 15 Year
  Sex: Male

DRUGS (10)
  1. INTERFERON GAMMA-1B [Suspect]
     Indication: BOVINE TUBERCULOSIS
     Dosage: SEE IMAGE
     Route: 058
  2. STREPTOMYCIN [Suspect]
     Indication: BOVINE TUBERCULOSIS
     Dosage: INTRAMUSCULAR
     Route: 030
  3. LINEZOLID [Suspect]
     Indication: BOVINE TUBERCULOSIS
     Dosage: ORAL
     Route: 048
  4. OFLOXACINE [Concomitant]
  5. CLOFAZIMINE [Concomitant]
  6. RIFABUTIN [Concomitant]
  7. ETHIONAMIDE [Concomitant]
  8. CIPROFLOXACIN [Concomitant]
  9. CLARITHROMYCIN [Concomitant]
  10. AMOXICILLIN + CLAVULANATE POTASSIUM [Concomitant]

REACTIONS (13)
  - CHEST WALL MASS [None]
  - ENTERITIS [None]
  - GASTRITIS [None]
  - GENERAL PHYSICAL HEALTH DETERIORATION [None]
  - HELICOBACTER INFECTION [None]
  - MALABSORPTION [None]
  - NEUROPATHY PERIPHERAL [None]
  - OPTIC NEUROPATHY [None]
  - PATHOGEN RESISTANCE [None]
  - PROTEIN-LOSING GASTROENTEROPATHY [None]
  - RESPIRATORY FAILURE [None]
  - SPUTUM CULTURE POSITIVE [None]
  - STEATORRHOEA [None]
